FAERS Safety Report 4678866-X (Version None)
Quarter: 2005Q2

REPORT INFORMATION
  Report Type: 
  Country: None (occurrence: None)
  Receive Date: 20050531
  Receipt Date: 20050506
  Transmission Date: 20051028
  Serious: Yes (Death)
  Sender: FDA-Public Use
  Company Number: PAR_0051_2005

PATIENT
  Age: 41 Year

DRUGS (3)
  1. IBUPROFEN [Suspect]
     Dosage: DF
  2. ACETAMINOPHEN [Suspect]
     Dosage: DF
  3. ACETAMINOPHEN W/HYDROCODONE [Suspect]
     Dosage: DF PO
     Route: 048

REACTIONS (1)
  - INTENTIONAL MISUSE [None]
